FAERS Safety Report 24922959 (Version 1)
Quarter: 2025Q1

REPORT INFORMATION
  Report Type: Spontaneous
  Country: US (occurrence: US)
  Receive Date: 20250204
  Receipt Date: 20250204
  Transmission Date: 20250408
  Serious: Yes (Death)
  Sender: PFIZER
  Company Number: US-PFIZER INC-202500023396

PATIENT

DRUGS (1)
  1. VYNDAMAX [Suspect]
     Active Substance: TAFAMIDIS

REACTIONS (1)
  - Death [Fatal]
